FAERS Safety Report 10517642 (Version 2)
Quarter: 2014Q4

REPORT INFORMATION
  Report Type: Spontaneous
  Country: US (occurrence: US)
  Receive Date: 20141014
  Receipt Date: 20141224
  Transmission Date: 20150528
  Serious: No
  Sender: FDA-Public Use
  Company Number: US-GLAXOSMITHKLINE-A1090449A

PATIENT
  Age: 62 Year
  Sex: Female
  Weight: 100.68 kg

DRUGS (12)
  1. TRAMADOL [Concomitant]
     Active Substance: TRAMADOL
  2. LOSARTAN [Concomitant]
     Active Substance: LOSARTAN
  3. ANORO ELLIPTA [Suspect]
     Active Substance: UMECLIDINIUM BROMIDE\VILANTEROL TRIFENATATE
     Indication: RESTRICTIVE PULMONARY DISEASE
     Route: 055
  4. PROBIOTIC [Concomitant]
     Active Substance: PROBIOTICS NOS
  5. CLONAZEPAM. [Concomitant]
     Active Substance: CLONAZEPAM
  6. AMLODIPINE [Concomitant]
     Active Substance: AMLODIPINE BESYLATE
  7. VENTOLIN [Concomitant]
     Active Substance: ALBUTEROL SULFATE
  8. GLYBURIDE + METFORMIN [Concomitant]
  9. OMEPRAZOL [Concomitant]
     Active Substance: OMEPRAZOLE
  10. LASIX [Concomitant]
     Active Substance: FUROSEMIDE
  11. ASPIRIN. [Concomitant]
     Active Substance: ASPIRIN
  12. CHOLESTYRAMINE. [Concomitant]
     Active Substance: CHOLESTYRAMINE

REACTIONS (1)
  - Blood glucose increased [Recovered/Resolved]

NARRATIVE: CASE EVENT DATE: 201409
